FAERS Safety Report 7265005-4 (Version None)
Quarter: 2011Q1

REPORT INFORMATION
  Report Type: 
  Country: None (occurrence: None)
  Receive Date: 20110131
  Receipt Date: 20110104
  Transmission Date: 20110831
  Serious: Yes (Other)
  Sender: FDA-Public Use
  Company Number: US-BAYER-201042004NA

PATIENT
  Sex: Female
  Weight: 70.295 kg

DRUGS (1)
  1. MIRENA [Suspect]
     Indication: CONTRACEPTION
     Dosage: FREQUENCY: CONTINUOUS
     Route: 015
     Dates: start: 20100310, end: 20101117

REACTIONS (4)
  - DEVICE DISLOCATION [None]
  - MENORRHAGIA [None]
  - POST PROCEDURAL DISCOMFORT [None]
  - MUSCLE SPASMS [None]
